FAERS Safety Report 6561330-0 (Version None)
Quarter: 2010Q1

REPORT INFORMATION
  Report Type: 
  Country: None (occurrence: None)
  Receive Date: 20100130
  Receipt Date: 20091016
  Transmission Date: 20100710
  Serious: No
  Sender: FDA-Public Use
  Company Number: US-ABBOTT-09P-163-0603633-00

PATIENT
  Sex: Male

DRUGS (2)
  1. HUMIRA [Suspect]
     Indication: PSORIASIS
     Route: 058
     Dates: start: 20090902, end: 20091016
  2. H1N1 FLU VACCINE [Concomitant]
     Indication: ANTIVIRAL PROPHYLAXIS
     Route: 045
     Dates: start: 20091001, end: 20091001

REACTIONS (1)
  - CONTRAINDICATION TO VACCINATION [None]
